FAERS Safety Report 6375698-1 (Version None)
Quarter: 2009Q3

REPORT INFORMATION
  Report Type: 
  Country: None (occurrence: None)
  Receive Date: 20090924
  Receipt Date: 20090914
  Transmission Date: 20100115
  Serious: Yes (Hospitalization)
  Sender: FDA-Public Use
  Company Number: AU-ABBOTT-09P-008-0587059-00

PATIENT
  Sex: Female

DRUGS (5)
  1. HUMIRA [Suspect]
     Indication: CROHN'S DISEASE
     Route: 058
     Dates: start: 20090415
  2. METHOTREXATE [Concomitant]
     Indication: CROHN'S DISEASE
     Dosage: 15 MG
     Dates: start: 20080721
  3. PREDNISOLONE [Concomitant]
     Indication: CROHN'S DISEASE
     Dates: start: 20090408
  4. FOLIC ACID [Concomitant]
     Indication: VITAMIN SUPPLEMENTATION
     Dates: start: 20080721
  5. TRAMADOL [Concomitant]
     Indication: ABDOMINAL PAIN
     Dosage: 50 MG
     Dates: start: 20081201

REACTIONS (2)
  - CROHN'S DISEASE [None]
  - PANCREATITIS [None]
